FAERS Safety Report 5553275-X (Version None)
Quarter: 2007Q4

REPORT INFORMATION
  Report Type: 
  Country: None (occurrence: None)
  Receive Date: 20071212
  Receipt Date: 20070711
  Transmission Date: 20080405
  Serious: No
  Sender: FDA-Public Use
  Company Number: US-AMGEN-KDL233843

PATIENT
  Sex: Female

DRUGS (2)
  1. ENBREL [Suspect]
     Indication: JUVENILE ARTHRITIS
     Route: 058
  2. ENBREL [Suspect]
     Indication: PSORIATIC ARTHROPATHY

REACTIONS (5)
  - FEELING HOT [None]
  - HEADACHE [None]
  - PYREXIA [None]
  - RHEUMATOID ARTHRITIS [None]
  - TREMOR [None]
